FAERS Safety Report 19380502 (Version 2)
Quarter: 2021Q2

REPORT INFORMATION
  Report Type: Report from Study
  Country: None (occurrence: CO)
  Receive Date: 20210607
  Receipt Date: 20210625
  Transmission Date: 20210717
  Serious: Yes (Death, Other)
  Sender: FDA-Public Use
  Company Number: CO-ABBVIE-21K-036-3937981-00

PATIENT
  Age: 26 Year
  Sex: Male
  Weight: 130 kg

DRUGS (1)
  1. HUMIRA [Suspect]
     Active Substance: ADALIMUMAB
     Indication: PSORIASIS
     Route: 058
     Dates: start: 20190228, end: 20200729

REACTIONS (2)
  - Cardio-respiratory arrest [Fatal]
  - Depression [Not Recovered/Not Resolved]

NARRATIVE: CASE EVENT DATE: 20210531
